FAERS Safety Report 8163005-3 (Version None)
Quarter: 2012Q1

REPORT INFORMATION
  Report Type: 
  Country: None (occurrence: None)
  Receive Date: 20120224
  Receipt Date: 20120221
  Transmission Date: 20120608
  Serious: Yes (Other)
  Sender: FDA-Public Use
  Company Number: US-PFIZER INC-2012045842

PATIENT
  Sex: Female
  Weight: 76.644 kg

DRUGS (7)
  1. TOPROL-XL [Concomitant]
     Indication: HYPERTENSION
     Dosage: 25 MG, 2X/DAY
  2. HUMULIN R [Concomitant]
     Indication: DIABETES MELLITUS
     Dosage: 25 IN MORNING AND 30 IN EVENING
  3. VICODIN [Concomitant]
     Indication: ANKYLOSING SPONDYLITIS
     Dosage: UNK
  4. GEMFIBROZIL [Concomitant]
     Indication: BLOOD CHOLESTEROL ABNORMAL
     Dosage: 600 MG, 2X/DAY
  5. MORPHINE [Concomitant]
     Indication: ANKYLOSING SPONDYLITIS
     Dosage: UNK
  6. NEURONTIN [Suspect]
     Indication: PAIN IN EXTREMITY
     Dosage: 100 MG, 3X/DAY
  7. HUMULIN N [Concomitant]
     Indication: DIABETES MELLITUS
     Dosage: 60 UNITS IN THE MORNING AND 70 UNITS IN EVENING

REACTIONS (2)
  - PAIN IN EXTREMITY [None]
  - CHRONIC OBSTRUCTIVE PULMONARY DISEASE [None]
